FAERS Safety Report 10069012 (Version 1)
Quarter: 2014Q2

REPORT INFORMATION
  Report Type: Spontaneous
  Country: US (occurrence: US)
  Receive Date: 20140409
  Receipt Date: 20140409
  Transmission Date: 20141212
  Serious: No
  Sender: FDA-Public Use
  Company Number: US-009507513-1404USA004898

PATIENT
  Sex: Male

DRUGS (1)
  1. TINACTIN JOCK ITCH POWDER SPRAY [Suspect]
     Indication: PRURITUS GENITAL
     Dosage: UNK, UNKNOWN
     Route: 061
     Dates: start: 20140326

REACTIONS (1)
  - Burning sensation [Not Recovered/Not Resolved]
